FAERS Safety Report 9163640 (Version 1)
Quarter: 2013Q1

REPORT INFORMATION
  Report Type: Spontaneous
  Country: US (occurrence: US)
  Receive Date: 20130314
  Receipt Date: 20130314
  Transmission Date: 20140127
  Serious: Yes (Other)
  Sender: FDA-Public Use
  Company Number: US-PFIZER INC-2013083415

PATIENT
  Age: 48 Year
  Sex: Female

DRUGS (8)
  1. CIPROFLOXACIN [Suspect]
     Dosage: UNK
  2. TRAMADOL HCL [Suspect]
     Dosage: UNK
  3. VANTIN [Suspect]
     Dosage: UNK
  4. VIBRAMYCIN [Suspect]
     Dosage: UNK
  5. MECLOZINE HCL [Suspect]
     Dosage: UNK
  6. BACTRIM [Suspect]
     Dosage: UNK
  7. KEFLEX [Suspect]
     Dosage: UNK
  8. ULTRACET [Suspect]
     Dosage: UNK

REACTIONS (2)
  - Anaphylactic reaction [Unknown]
  - Drug hypersensitivity [Unknown]
